FAERS Safety Report 5140823-7 (Version None)
Quarter: 2006Q4

REPORT INFORMATION
  Report Type: 
  Country: None (occurrence: None)
  Receive Date: 20061026
  Receipt Date: 20061017
  Transmission Date: 20070319
  Serious: Yes (Other)
  Sender: FDA-Public Use
  Company Number: 2006128651

PATIENT
  Age: 61 Year
  Sex: Female

DRUGS (1)
  1. ZOLOFT [Suspect]
     Dosage: 100 MG (1 IN 1 D), ORAL
     Route: 048

REACTIONS (4)
  - AKINESIA [None]
  - EXTRAPYRAMIDAL DISORDER [None]
  - PARKINSONIAN GAIT [None]
  - TREMOR [None]
